FAERS Safety Report 20159976 (Version 1)
Quarter: 2021Q4

REPORT INFORMATION
  Report Type: Spontaneous
  Country: DE (occurrence: DE)
  Receive Date: 20211208
  Receipt Date: 20211208
  Transmission Date: 20220303
  Serious: Yes (Other)
  Sender: FDA-Public Use
  Company Number: DE-STRIDES ARCOLAB LIMITED-2021SP030696

PATIENT
  Age: 54 Year
  Sex: Male

DRUGS (9)
  1. PREDNISOLONE [Interacting]
     Active Substance: PREDNISOLONE
     Indication: Polycythaemia vera
     Dosage: 100 MILLIGRAM
     Route: 065
  2. PREDNISOLONE [Interacting]
     Active Substance: PREDNISOLONE
     Indication: Cutaneous vasculitis
     Dosage: 5 MILLIGRAM, DAILY
     Route: 065
  3. UPADACITINIB [Interacting]
     Active Substance: UPADACITINIB
     Indication: Rheumatoid arthritis
     Dosage: 15 MILLIGRAM, DAILY
     Route: 065
     Dates: start: 202101
  4. METHOTREXATE [Interacting]
     Active Substance: METHOTREXATE
     Indication: Rheumatoid arthritis
     Dosage: 10 MILLIGRAM, EVERY WEEK
     Route: 065
     Dates: start: 202101
  5. METHOTREXATE [Interacting]
     Active Substance: METHOTREXATE
     Dosage: 12.5 MILLIGRAM, EVERY WEEK BETWEEN SECOND AND THIRD DOSE
     Route: 065
  6. TOZINAMERAN [Interacting]
     Active Substance: TOZINAMERAN
     Indication: Immunisation
     Dosage: UNK, FIRST DOSE
     Route: 065
  7. TOZINAMERAN [Interacting]
     Active Substance: TOZINAMERAN
     Dosage: UNK, SECOND DOSE
     Route: 065
  8. TOZINAMERAN [Interacting]
     Active Substance: TOZINAMERAN
     Dosage: UNK, THIRD DOSE
     Route: 065
  9. TOZINAMERAN [Interacting]
     Active Substance: TOZINAMERAN
     Dosage: UNK, FOURTH DOSE
     Route: 065

REACTIONS (2)
  - Drug interaction [Unknown]
  - Vaccination failure [Unknown]
